FAERS Safety Report 19389006 (Version 1)
Quarter: 2021Q2

REPORT INFORMATION
  Report Type: Spontaneous
  Country: US (occurrence: US)
  Receive Date: 20210607
  Receipt Date: 20210607
  Transmission Date: 20210717
  Serious: No
  Sender: FDA-Public Use
  Company Number: US-FDC LIMITED-2021RIS00009

PATIENT
  Sex: Male
  Weight: 72.56 kg

DRUGS (6)
  1. TIMOLOL MALEATE. [Suspect]
     Active Substance: TIMOLOL MALEATE
     Dosage: 2 DROPS, 2X/DAY IN EACH EYE
     Route: 031
  2. TIMOLOL MALEATE. [Suspect]
     Active Substance: TIMOLOL MALEATE
     Indication: INTRAOCULAR PRESSURE TEST ABNORMAL
     Dosage: UNK
     Route: 031
  3. TIMOLOL MALEATE. [Suspect]
     Active Substance: TIMOLOL MALEATE
     Indication: GLAUCOMA
     Dosage: 1 DROP, 2X/DAY (IN THE MORNING AND EVENING) IN EACH EYE
     Route: 031
     Dates: start: 2016
  4. AMLODIPINE [Concomitant]
     Active Substance: AMLODIPINE BESYLATE
     Dosage: 5 MG, 2X/DAY
  5. PANTOPRAZOLE [Concomitant]
     Active Substance: PANTOPRAZOLE
     Dosage: 40 MG, 2X/DAY
  6. LATANOPROST. [Concomitant]
     Active Substance: LATANOPROST
     Dosage: UNK, 1X/DAY IN THE EVENING

REACTIONS (8)
  - Paranasal sinus discomfort [Not Recovered/Not Resolved]
  - Intraocular pressure increased [Recovered/Resolved]
  - Oral mucosal blistering [Not Recovered/Not Resolved]
  - Asthenia [Not Recovered/Not Resolved]
  - Coating in mouth [Not Recovered/Not Resolved]
  - Eye irritation [Not Recovered/Not Resolved]
  - Dry eye [Not Recovered/Not Resolved]
  - Cough [Recovering/Resolving]

NARRATIVE: CASE EVENT DATE: 2014
